FAERS Safety Report 9826691 (Version 1)
Quarter: 2013Q4

REPORT INFORMATION
  Report Type: Spontaneous
  Country: US (occurrence: None)
  Receive Date: 20131112
  Receipt Date: 20131112
  Transmission Date: 20140711
  Serious: Yes (Other)
  Sender: FDA-Public Use
  Company Number: E2B_00001184

PATIENT
  Age: 66 Year
  Sex: Female
  Weight: 70.31 kg

DRUGS (4)
  1. LISINOPRIL TABLETS USP 10 MG (LISINOPRIL TABLETS USP 10MG) (LISINOPRIL) [Suspect]
     Indication: BLOOD PRESSURE
     Dosage: 20 MG (10 MG, 2 TABLETS PER DAY), PER ORAL
     Route: 048
     Dates: end: 201308
  2. SERTRALINE (UNKNOWN) (SERTRALINE)? [Concomitant]
  3. LEVOTHYROXINE (UNKNOWN) (LEVOTHYROXINE)? [Concomitant]
  4. ATRORVASTATIN (LIPITOR) (UNKNOWN) (ATORVASTATIN) [Concomitant]

REACTIONS (2)
  - Blood pressure increased [None]
  - Drug ineffective [None]
